FAERS Safety Report 6794827-9 (Version None)
Quarter: 2010Q2

REPORT INFORMATION
  Report Type: 
  Country: None (occurrence: None)
  Receive Date: 20100624
  Receipt Date: 20100624
  Transmission Date: 20101027
  Serious: Yes (Hospitalization)
  Sender: FDA-Public Use
  Company Number: None

PATIENT
  Sex: Female

DRUGS (1)
  1. DORIPENEM MONOHYDRATE [Suspect]
     Dates: start: 20090329, end: 20090422

REACTIONS (3)
  - ANAEMIA [None]
  - HEPARIN-INDUCED THROMBOCYTOPENIA [None]
  - LEUKOPENIA [None]
